FAERS Safety Report 8889062 (Version 1)
Quarter: 2012Q4

REPORT INFORMATION
  Report Type: 
  Country: JP (occurrence: JP)
  Receive Date: 20121106
  Receipt Date: 20121106
  Transmission Date: 20130627
  Serious: Yes (Other)
  Sender: FDA-Public Use
  Company Number: JP-ROCHE-1143855

PATIENT
  Age: 54 Year
  Sex: Male

DRUGS (1)
  1. VESANOID [Suspect]
     Indication: ACUTE PROMYELOCYTIC LEUKAEMIA
     Dosage: It is 3, and is 2, and 3 at night in daytime in the morning as for 10mg.
     Route: 048
     Dates: start: 20120727

REACTIONS (2)
  - Blood triglycerides increased [Unknown]
  - Diabetes mellitus [Unknown]
